FAERS Safety Report 7908659-9 (Version None)
Quarter: 2011Q4

REPORT INFORMATION
  Report Type: 
  Country: None (occurrence: None)
  Receive Date: 20111111
  Receipt Date: 20111108
  Transmission Date: 20120403
  Serious: Yes (Other)
  Sender: FDA-Public Use
  Company Number: PHEH2011US07751

PATIENT
  Sex: Female

DRUGS (5)
  1. LOVASTATIN [Concomitant]
     Indication: HYPERLIPIDAEMIA
  2. RECLAST [Suspect]
     Indication: OSTEOPOROSIS
     Dosage: UNK
     Route: 042
     Dates: start: 20111014
  3. ATENOLOL [Concomitant]
     Indication: HYPERTENSION
  4. HYDROCHLOROTHIAZIDE [Concomitant]
     Indication: HYPERTENSION
  5. OXYBUTYNIN [Concomitant]
     Indication: URINARY INCONTINENCE

REACTIONS (5)
  - SWOLLEN TONGUE [None]
  - PRURITUS [None]
  - LIP SWELLING [None]
  - TONGUE BLISTERING [None]
  - OEDEMA MOUTH [None]
